FAERS Safety Report 7124511-3 (Version None)
Quarter: 2010Q4

REPORT INFORMATION
  Report Type: 
  Country: None (occurrence: None)
  Receive Date: 20101128
  Receipt Date: 20101118
  Transmission Date: 20110411
  Serious: Yes (Hospitalization, Other)
  Sender: FDA-Public Use
  Company Number: US-AMGEN-USASP2010005757

PATIENT

DRUGS (3)
  1. PROCRIT [Suspect]
     Indication: PRODUCT USED FOR UNKNOWN INDICATION
     Dosage: 10000 IU, UNK
     Route: 058
     Dates: start: 20091001, end: 20091201
  2. PROCRIT [Suspect]
     Dosage: 10000 IU, UNK
     Route: 058
     Dates: start: 20100601
  3. COUMADIN [Suspect]

REACTIONS (6)
  - DIABETES MELLITUS [None]
  - HAEMOGLOBIN DECREASED [None]
  - INJECTION SITE PAIN [None]
  - RENAL DISORDER [None]
  - THROMBOSIS [None]
  - VASCULITIS [None]
